FAERS Safety Report 5744229-9 (Version None)
Quarter: 2008Q2

REPORT INFORMATION
  Report Type: 
  Country: None (occurrence: None)
  Receive Date: 20080516
  Receipt Date: 20080505
  Transmission Date: 20081010
  Serious: Yes (Hospitalization, Other)
  Sender: FDA-Public Use
  Company Number: 48059

PATIENT
  Age: 46 Year
  Sex: Male

DRUGS (1)
  1. LEUCOVORIN CALCIUM [Suspect]
     Indication: COLON CANCER
     Dosage: 812 MG IV
     Route: 042
     Dates: start: 20080402

REACTIONS (6)
  - CATHETER SITE RELATED REACTION [None]
  - CHEST PAIN [None]
  - DEPRESSION [None]
  - HYPOVOLAEMIA [None]
  - MENTAL STATUS CHANGES [None]
  - PURULENCE [None]
